FAERS Safety Report 6004113-2 (Version None)
Quarter: 2008Q4

REPORT INFORMATION
  Report Type: 
  Country: None (occurrence: None)
  Receive Date: 20081216
  Receipt Date: 20081208
  Transmission Date: 20090506
  Serious: Yes (Disabling)
  Sender: FDA-Public Use
  Company Number: FR-JNJFOC-20070205558

PATIENT
  Sex: Male
  Weight: 80 kg

DRUGS (11)
  1. RISPERDAL [Suspect]
     Indication: DRUG USE FOR UNKNOWN INDICATION
     Route: 048
  2. RIVOTRIL [Concomitant]
     Indication: ANALGESIC THERAPY
     Route: 048
  3. RIVOTRIL [Concomitant]
     Indication: ANXIOLYTIC THERAPY
     Route: 048
  4. MILLEPERTUIS [Concomitant]
  5. DI-ANTALVIC [Concomitant]
  6. AMOXICILLIN [Concomitant]
  7. LOXAPINE HCL [Concomitant]
     Route: 048
  8. SULFARLEM [Concomitant]
     Route: 065
  9. VALIUM [Concomitant]
     Indication: ANXIETY
     Route: 048
  10. TEMESTA [Concomitant]
     Route: 065
  11. LEPTICUR [Concomitant]
     Route: 065

REACTIONS (9)
  - BURNING SENSATION [None]
  - DECREASED ACTIVITY [None]
  - DISTURBANCE IN ATTENTION [None]
  - FATIGUE [None]
  - GLOSSODYNIA [None]
  - MEMORY IMPAIRMENT [None]
  - SLEEP DISORDER [None]
  - THINKING ABNORMAL [None]
  - TREMOR [None]
